FAERS Safety Report 9752333 (Version 1)
Quarter: 2013Q4

REPORT INFORMATION
  Report Type: Spontaneous
  Country: DK (occurrence: None)
  Receive Date: 20131211
  Receipt Date: 20131211
  Transmission Date: 20140711
  Serious: Yes (Other)
  Sender: FDA-Public Use
  Company Number: AUR-APL-2013-10214

PATIENT
  Age: 57 Year
  Sex: Female

DRUGS (3)
  1. SERTRALINE [Suspect]
     Indication: ANXIETY
     Dosage: 25MG, 1D
     Dates: start: 201304
  2. CRESTOR (ROSUVASTATIN CALCIUM) [Concomitant]
  3. LYRICA (PREGABALIN) [Concomitant]

REACTIONS (5)
  - Swelling face [None]
  - Anxiety [None]
  - Weight increased [None]
  - Dysphonia [None]
  - Chronic obstructive pulmonary disease [None]
